FAERS Safety Report 5954622-7 (Version None)
Quarter: 2008Q4

REPORT INFORMATION
  Report Type: 
  Country: None (occurrence: None)
  Receive Date: 20081112
  Receipt Date: 20081027
  Transmission Date: 20090506
  Serious: Yes (Death)
  Sender: FDA-Public Use
  Company Number: 2008AR0144

PATIENT
  Sex: Female

DRUGS (9)
  1. ORFADIN [Suspect]
     Indication: TYROSINAEMIA
     Dosage: 2 MG/KG, ORAL
     Route: 048
     Dates: start: 20080620, end: 20080923
  2. GANCICLOVIR [Concomitant]
  3. VANCOMYCIN [Concomitant]
  4. IMIPENEM (IMIPENEM) [Concomitant]
  5. COLISTIN (COLISTIN) [Concomitant]
  6. METRONIDAZOLE [Concomitant]
  7. NEOMYCINE (NEOMYCIN) [Concomitant]
  8. CLONIDINE [Concomitant]
  9. MIDAZOLAM HCL [Concomitant]

REACTIONS (3)
  - CONDITION AGGRAVATED [None]
  - NO THERAPEUTIC RESPONSE [None]
  - THROMBOCYTOPENIA [None]
